FAERS Safety Report 7913546-6 (Version None)
Quarter: 2011Q4

REPORT INFORMATION
  Report Type: 
  Country: None (occurrence: None)
  Receive Date: 20111115
  Receipt Date: 20111102
  Transmission Date: 20120403
  Serious: Yes (Congenital Anomaly)
  Sender: FDA-Public Use
  Company Number: US-JNJFOC-PRIUSA1999003248

PATIENT
  Sex: Male

DRUGS (6)
  1. DEPAKOTE [Concomitant]
  2. PAXIL [Concomitant]
  3. FOLIC ACID [Concomitant]
  4. TOPAMAX [Suspect]
     Indication: PRODUCT USED FOR UNKNOWN INDICATION
     Route: 064
  5. MULTI-VITAMINS [Concomitant]
  6. LAMICTAL [Concomitant]

REACTIONS (3)
  - FOETAL EXPOSURE DURING PREGNANCY [None]
  - CONGENITAL ANOMALY [None]
  - SYNDACTYLY [None]
